FAERS Safety Report 25493043 (Version 1)
Quarter: 2025Q2

REPORT INFORMATION
  Report Type: Spontaneous
  Country: US (occurrence: US)
  Receive Date: 20250630
  Receipt Date: 20250630
  Transmission Date: 20250716
  Serious: No
  Sender: UCB
  Company Number: US-UCBSA-2024031113

PATIENT
  Age: 52 Year
  Sex: Male
  Weight: 112 kg

DRUGS (10)
  1. MIDAZOLAM [Suspect]
     Active Substance: MIDAZOLAM
     Indication: Sedative therapy
  2. MIDAZOLAM [Suspect]
     Active Substance: MIDAZOLAM
     Indication: Off label use
  3. FENTANYL [Concomitant]
     Active Substance: FENTANYL
     Indication: General anaesthesia
  4. FENTANYL [Concomitant]
     Active Substance: FENTANYL
     Indication: Sedative therapy
  5. PROPOFOL [Concomitant]
     Active Substance: PROPOFOL
     Indication: General anaesthesia
  6. ROCURONIUM [Concomitant]
     Active Substance: ROCURONIUM BROMIDE
     Indication: Product used for unknown indication
  7. NOREPINEPHRINE [Concomitant]
     Active Substance: NOREPINEPHRINE
     Indication: Product used for unknown indication
  8. NOREPINEPHRINE [Concomitant]
     Active Substance: NOREPINEPHRINE
  9. EPINEPHRINE [Concomitant]
     Active Substance: EPINEPHRINE
     Indication: Product used for unknown indication
     Route: 040
  10. ALBUTEROL [Concomitant]
     Active Substance: ALBUTEROL
     Indication: Bronchospasm
     Route: 007

REACTIONS (1)
  - No adverse event [Unknown]
